FAERS Safety Report 5305085-6 (Version None)
Quarter: 2007Q2

REPORT INFORMATION
  Report Type: 
  Country: None (occurrence: None)
  Receive Date: 20070417
  Receipt Date: 20070406
  Transmission Date: 20071010
  Serious: Yes (Hospitalization, Other)
  Sender: FDA-Public Use
  Company Number: 163-21880-07011196

PATIENT
  Age: 68 Year
  Sex: Male

DRUGS (13)
  1. REVLIMID [Suspect]
     Indication: MULTIPLE MYELOMA
     Dosage: 25 MG, DAILY, ORAL
     Route: 048
     Dates: start: 20060201, end: 20061225
  2. REVLIMID [Suspect]
     Indication: MULTIPLE MYELOMA
     Dosage: 25 MG, DAILY, ORAL
     Route: 048
     Dates: start: 20070116
  3. ZOCOR [Concomitant]
  4. DIOVAN [Concomitant]
  5. PEPCID [Concomitant]
  6. LEVEMIR (INSULIN DETEMIR) [Concomitant]
  7. HUMULOG (INSULIN LISPRO) [Concomitant]
  8. METFORMIN HCL [Concomitant]
  9. ASPIRIN [Concomitant]
  10. CALCIUM (CALCIUM) [Concomitant]
  11. ASCORBIC ACID [Concomitant]
  12. QUININE SULFATE [Concomitant]
  13. COREG [Concomitant]

REACTIONS (4)
  - CARDIOMYOPATHY [None]
  - CORONARY ARTERY OCCLUSION [None]
  - GRAND MAL CONVULSION [None]
  - INFECTION [None]
